FAERS Safety Report 8189904-4 (Version None)
Quarter: 2012Q1

REPORT INFORMATION
  Report Type: 
  Country: None (occurrence: None)
  Receive Date: 20120307
  Receipt Date: 20120223
  Transmission Date: 20120608
  Serious: Yes (Other)
  Sender: FDA-Public Use
  Company Number: US-DX529-2012DX000048

PATIENT
  Age: 54 Year
  Sex: Female
  Weight: 92.08 kg

DRUGS (2)
  1. KALBITOR [Suspect]
     Indication: HEREDITARY ANGIOEDEMA
     Route: 058
     Dates: start: 20120222, end: 20120222
  2. OXANDRIN [Concomitant]
     Indication: PROPHYLAXIS

REACTIONS (8)
  - HEART RATE INCREASED [None]
  - BLOOD PRESSURE DECREASED [None]
  - FEELING ABNORMAL [None]
  - BLOOD GLUCOSE INCREASED [None]
  - NAUSEA [None]
  - DIZZINESS [None]
  - CHILLS [None]
  - ANXIETY [None]
